FAERS Safety Report 14293101 (Version 2)
Quarter: 2020Q2

REPORT INFORMATION
  Report Type: Spontaneous
  Country: US (occurrence: US)
  Receive Date: 20171215
  Receipt Date: 20200622
  Transmission Date: 20200713
  Serious: No
  Sender: FDA-Public Use
  Company Number: US-PFIZER INC-2017533089

PATIENT
  Age: 80 Year
  Sex: Female
  Weight: 63.5 kg

DRUGS (2)
  1. WARFARIN [Concomitant]
     Active Substance: WARFARIN
     Indication: THROMBOSIS
     Dosage: UNK, (DOSE VARIES PENDING INR RESULTS)
     Dates: start: 2005
  2. AROMASIN [Suspect]
     Active Substance: EXEMESTANE
     Indication: BREAST CANCER FEMALE
     Dosage: 25 MG, DAILY
     Route: 048
     Dates: start: 2011

REACTIONS (4)
  - Nasopharyngitis [Recovering/Resolving]
  - Mobility decreased [Unknown]
  - Confusional state [Unknown]
  - Product use complaint [Unknown]

NARRATIVE: CASE EVENT DATE: 20171205
